FAERS Safety Report 4558919-7 (Version None)
Quarter: 2005Q1

REPORT INFORMATION
  Report Type: 
  Country: None (occurrence: None)
  Receive Date: 20050121
  Receipt Date: 20041223
  Transmission Date: 20050727
  Serious: Yes (Life-Threatening, Hospitalization, Disabling, Other)
  Sender: FDA-Public Use
  Company Number: US-MERCK-0412USA02890

PATIENT
  Age: 69 Year
  Sex: Female
  Weight: 71 kg

DRUGS (7)
  1. VIOXX [Suspect]
     Indication: ARTHRITIS
     Route: 048
     Dates: start: 20030604, end: 20031211
  2. VIOXX [Suspect]
     Indication: ARTHRALGIA
     Route: 048
     Dates: start: 20030604, end: 20031211
  3. DIOVAN [Concomitant]
     Route: 065
  4. EVISTA [Concomitant]
     Route: 065
  5. NEXIUM [Concomitant]
     Route: 065
  6. COUMADIN [Concomitant]
     Route: 065
  7. DYAZIDE [Concomitant]
     Route: 065

REACTIONS (3)
  - DEEP VEIN THROMBOSIS [None]
  - OEDEMA PERIPHERAL [None]
  - PERIPHERAL VASCULAR DISORDER [None]
